FAERS Safety Report 9500972 (Version 1)
Quarter: 2013Q3

REPORT INFORMATION
  Report Type: Spontaneous
  Country: NO (occurrence: NO)
  Receive Date: 20130905
  Receipt Date: 20130905
  Transmission Date: 20140515
  Serious: Yes (Disabling)
  Sender: FDA-Public Use
  Company Number: PHHY2013NO094502

PATIENT
  Age: 57 Year
  Sex: Female

DRUGS (9)
  1. ALENDRONIC ACID [Suspect]
     Indication: OSTEOPOROSIS
     Dosage: 70 MG WEEKLY
     Route: 048
     Dates: start: 20080805, end: 20130507
  2. CALCIGRAN FORTE [Concomitant]
     Indication: OSTEOPOROSIS
     Dosage: 500 MG, UNK
     Route: 048
     Dates: start: 20080805
  3. ORFIRIL [Concomitant]
     Indication: BIPOLAR DISORDER
     Dosage: 2100 MG, UNK
     Route: 048
     Dates: start: 2003
  4. LIOTHYRONIN [Concomitant]
     Indication: HYPOTHYROIDISM
     Dosage: 20 UG, UNK
     Route: 048
     Dates: start: 2000
  5. LEVAXIN [Concomitant]
     Indication: HYPOTHYROIDISM
     Dosage: 150 UG, UNK
     Route: 048
     Dates: start: 2000
  6. CIRCADIN [Concomitant]
     Indication: SLEEP PHASE RHYTHM DISTURBANCE
     Dosage: 2 MG, UNK
     Route: 048
     Dates: start: 20130621
  7. VENLAFAXINE [Concomitant]
     Indication: BIPOLAR DISORDER
     Dosage: 225 MG, UNK
     Route: 048
     Dates: start: 20091118
  8. LAMICTAL [Concomitant]
     Indication: BIPOLAR DISORDER
     Dosage: 125 MG, UNK
     Route: 048
     Dates: start: 2003
  9. MODIODAL [Concomitant]
     Indication: HYPERSOMNIA
     Dosage: 300 MG, UNK
     Route: 048
     Dates: start: 20110831

REACTIONS (1)
  - Hypersomnia [Not Recovered/Not Resolved]
